FAERS Safety Report 6820471-0 (Version None)
Quarter: 2010Q3

REPORT INFORMATION
  Report Type: 
  Country: None (occurrence: None)
  Receive Date: 20100707
  Receipt Date: 20100603
  Transmission Date: 20110219
  Serious: Yes (Other)
  Sender: FDA-Public Use
  Company Number: US-BIOGENIDEC-2008BI025406

PATIENT
  Age: 42 Year
  Sex: Female

DRUGS (3)
  1. AVONEX [Suspect]
     Indication: MULTIPLE SCLEROSIS
     Route: 030
     Dates: start: 20000101, end: 20060525
  2. AVONEX [Suspect]
     Route: 030
     Dates: start: 20060818, end: 20081026
  3. AVONEX [Suspect]
     Route: 030

REACTIONS (2)
  - BREAST CANCER [None]
  - BREAST CANCER FEMALE [None]
